FAERS Safety Report 21063696 (Version 1)
Quarter: 2022Q3

REPORT INFORMATION
  Report Type: Spontaneous
  Country: SK (occurrence: SK)
  Receive Date: 20220711
  Receipt Date: 20220711
  Transmission Date: 20221027
  Serious: Yes (Other)
  Sender: FDA-Public Use
  Company Number: SK-MYLANLABS-2022M1029058

PATIENT
  Age: 35 Year
  Sex: Female

DRUGS (4)
  1. SILDENAFIL [Suspect]
     Active Substance: SILDENAFIL
     Indication: Pulmonary arterial hypertension
     Dosage: UNK
     Route: 065
  2. AMBRISENTAN [Suspect]
     Active Substance: AMBRISENTAN
     Indication: Pulmonary arterial hypertension
     Dosage: UNK, STOPPED DURING PREGNANCY AND LATER RE-STARTED
     Route: 065
  3. WARFARIN [Suspect]
     Active Substance: WARFARIN
     Indication: Pulmonary arterial hypertension
     Dosage: UNK
     Route: 065
  4. METHAMPHETAMINE [Suspect]
     Active Substance: METHAMPHETAMINE
     Indication: Product used for unknown indication
     Dosage: UNK
     Route: 065

REACTIONS (2)
  - Pulmonary arterial hypertension [Recovering/Resolving]
  - Maternal exposure during pregnancy [Recovered/Resolved]
